FAERS Safety Report 7639948-3 (Version None)
Quarter: 2011Q3

REPORT INFORMATION
  Report Type: 
  Country: None (occurrence: None)
  Receive Date: 20110727
  Receipt Date: 20110711
  Transmission Date: 20111222
  Serious: Yes (Other)
  Sender: FDA-Public Use
  Company Number: PHFR2011GB03876

PATIENT
  Sex: Female

DRUGS (3)
  1. ESCITALOPRAM [Concomitant]
     Dosage: 20 MG, UNK
     Route: 048
     Dates: start: 20080101
  2. CLOZAPINE [Suspect]
     Dosage: 450 MG
     Route: 048
     Dates: start: 20031125
  3. CITALOPRAM HYDROBROMIDE [Concomitant]
     Route: 065
     Dates: start: 20040101, end: 20080101

REACTIONS (1)
  - DIFFERENTIAL WHITE BLOOD CELL COUNT ABNORMAL [None]
